FAERS Safety Report 5466367-0 (Version None)
Quarter: 2007Q3

REPORT INFORMATION
  Report Type: 
  Country: None (occurrence: None)
  Receive Date: 20070920
  Receipt Date: 20070906
  Transmission Date: 20080115
  Serious: Yes (Other)
  Sender: FDA-Public Use
  Company Number: 2007SP016347

PATIENT
  Age: 35 Year
  Sex: Female
  Weight: 108.8633 kg

DRUGS (11)
  1. CLARITIN [Suspect]
     Indication: EYE PRURITUS
     Dosage: PO, DF;ONCE;PO
     Route: 048
     Dates: start: 20070804
  2. CLARITIN [Suspect]
     Indication: HYPERSENSITIVITY
     Dosage: PO, DF;ONCE;PO
     Route: 048
     Dates: start: 20070804
  3. CLARITIN [Suspect]
     Indication: NASAL CONGESTION
     Dosage: PO, DF;ONCE;PO
     Route: 048
     Dates: start: 20070804
  4. CLARITIN [Suspect]
     Indication: EYE PRURITUS
     Dosage: PO, DF;ONCE;PO
     Route: 048
     Dates: start: 20070805
  5. CLARITIN [Suspect]
     Indication: HYPERSENSITIVITY
     Dosage: PO, DF;ONCE;PO
     Route: 048
     Dates: start: 20070805
  6. CLARITIN [Suspect]
     Indication: NASAL CONGESTION
     Dosage: PO, DF;ONCE;PO
     Route: 048
     Dates: start: 20070805
  7. CLARITIN [Suspect]
     Indication: DRUG USE FOR UNKNOWN INDICATION
  8. METFORMIN HCL [Suspect]
     Dates: start: 20070803
  9. MULTI-VITAMIN [Concomitant]
  10. CALCIUM [Concomitant]
  11. KETOCONAZOLE [Concomitant]

REACTIONS (5)
  - APHASIA [None]
  - DYSPHASIA [None]
  - DYSPNOEA [None]
  - PHARMACEUTICAL PRODUCT COMPLAINT [None]
  - SWOLLEN TONGUE [None]
